FAERS Safety Report 5368201-6 (Version None)
Quarter: 2007Q2

REPORT INFORMATION
  Report Type: 
  Country: None (occurrence: None)
  Receive Date: 20070625
  Receipt Date: 20070618
  Transmission Date: 20071010
  Serious: Yes (Hospitalization, Other)
  Sender: FDA-Public Use
  Company Number: PHNU2007DE02165

PATIENT
  Age: 60 Year
  Sex: Female

DRUGS (10)
  1. IMMUNOSPORIN [Suspect]
     Indication: RHEUMATOID ARTHRITIS
     Dosage: 50 MG DAILY
     Route: 048
     Dates: start: 20060701
  2. DECORTIN [Concomitant]
  3. PANTOZOL [Concomitant]
  4. TORSEMIDE [Concomitant]
  5. DIOVAN [Concomitant]
  6. BELOC ZOK [Concomitant]
  7. SIMVASTATIN [Concomitant]
  8. CALCIUM D3 ^STADA^ [Concomitant]
  9. MARCUMAR [Concomitant]
  10. AMITRIPTYLINE HCL [Concomitant]

REACTIONS (7)
  - DYSGEUSIA [None]
  - HERPES ZOSTER [None]
  - HYPOCHROMIC ANAEMIA [None]
  - NAUSEA [None]
  - RENAL FAILURE [None]
  - VERTIGO [None]
  - VOMITING [None]
